FAERS Safety Report 7430361-0 (Version None)
Quarter: 2011Q2

REPORT INFORMATION
  Report Type: 
  Country: None (occurrence: None)
  Receive Date: 20110421
  Receipt Date: 20100921
  Transmission Date: 20111010
  Serious: No
  Sender: FDA-Public Use
  Company Number: US-ASTRAZENECA-2010SE35075

PATIENT
  Age: 73 Year
  Sex: Female

DRUGS (19)
  1. METOPROLOL SUCCINATE [Suspect]
     Indication: ARRHYTHMIA
     Route: 048
     Dates: start: 20100501
  2. FOSAMAX [Concomitant]
  3. XALATAN [Concomitant]
  4. VITAMIN E [Concomitant]
  5. ASPIRIN [Concomitant]
  6. AMLODIPINE [Concomitant]
  7. VITAMIN B [Concomitant]
  8. MULTI-VITAMINS [Concomitant]
  9. LISINOPRIL [Concomitant]
  10. FEMARA [Concomitant]
  11. ATENOLOL [Concomitant]
  12. FISH OIL CAPSULES [Concomitant]
  13. CALCIUM PLUS D [Concomitant]
  14. POTASSIUM [Concomitant]
  15. ASCORBIC ACID [Concomitant]
  16. METOPROLOL SUCCINATE [Suspect]
     Route: 048
     Dates: end: 20100626
  17. ARIMIDEX [Suspect]
     Route: 048
  18. SELENIUM [Concomitant]
  19. BETA CAROTENE [Concomitant]

REACTIONS (11)
  - ALOPECIA [None]
  - HOT FLUSH [None]
  - PALPITATIONS [None]
  - DIZZINESS [None]
  - STICKY SKIN [None]
  - CHEST PAIN [None]
  - HYPERHIDROSIS [None]
  - THERAPEUTIC RESPONSE UNEXPECTED WITH DRUG SUBSTITUTION [None]
  - NIGHTMARE [None]
  - ARTHRALGIA [None]
  - DRUG HYPERSENSITIVITY [None]
